FAERS Safety Report 4839474-0 (Version None)
Quarter: 2005Q4

REPORT INFORMATION
  Report Type: 
  Country: None (occurrence: None)
  Receive Date: 20051129
  Receipt Date: 20051123
  Transmission Date: 20060501
  Serious: Yes (Other)
  Sender: FDA-Public Use
  Company Number: 200514293EU

PATIENT
  Age: 48 Year
  Sex: Male

DRUGS (22)
  1. NICODERM CQ [Suspect]
     Dosage: 14MG PER DAY
     Route: 062
     Dates: start: 20051001
  2. NICODERM CQ [Suspect]
     Dosage: 1PAT PER DAY
     Route: 062
  3. BUDESONIDE [Concomitant]
     Indication: ASTHMA
     Route: 055
     Dates: start: 19820101
  4. DIAZEPAM [Concomitant]
     Indication: ANXIETY
     Dates: start: 20010101
  5. VITAMIN B-12 [Concomitant]
     Dates: start: 20051006
  6. LAXATIVES [Concomitant]
     Indication: CONSTIPATION
     Dates: start: 20020101
  7. CALADRYL [Concomitant]
     Indication: ASTHMA
     Dosage: 18UG PER DAY
     Dates: start: 20040101
  8. RAMIPRIL [Concomitant]
     Indication: ENZYME INHIBITION
     Dates: start: 20010101
  9. ERGOCALCIFEROL [Concomitant]
     Indication: VITAMIN SUPPLEMENTATION
     Dates: start: 20020101
  10. SALBUTAMOL [Concomitant]
     Indication: DRUG USE FOR UNKNOWN INDICATION
     Dosage: 400UG FOUR TIMES PER DAY
     Route: 055
     Dates: start: 19780101
  11. GLIPIZIDE [Concomitant]
     Dates: start: 20000101
  12. METFORMIN [Concomitant]
     Route: 048
     Dates: start: 20010101
  13. ARTHROTEC [Concomitant]
     Indication: OSTEOARTHRITIS
     Dates: start: 20010101
  14. CODEINE CONTIN [Concomitant]
     Indication: OSTEOARTHRITIS
     Dates: start: 20030101
  15. OXYCOCET [Concomitant]
     Indication: OSTEOARTHRITIS
     Dates: start: 20020101
  16. NIFEDIPINE [Concomitant]
     Indication: HYPERTENSION
     Dates: start: 20010101
  17. QUININE [Concomitant]
     Dates: start: 20020101
  18. RANITIDINE [Concomitant]
     Dates: start: 20040101
  19. BUDESONIDE [Concomitant]
     Indication: MULTIPLE ALLERGIES
     Dosage: 2SPR AS REQUIRED
     Route: 045
     Dates: start: 19990101
  20. TEARS NATURALE [Concomitant]
     Route: 047
     Dates: start: 20030101
  21. VITAMINS [Concomitant]
     Route: 048
  22. CALCIUM GLUCONATE [Concomitant]
     Dosage: 1TAB PER DAY
     Route: 048
     Dates: start: 20020101

REACTIONS (7)
  - ABDOMINAL DISTENSION [None]
  - ABDOMINAL PAIN [None]
  - AMOEBIC DYSENTERY [None]
  - ANAEMIA VITAMIN B12 DEFICIENCY [None]
  - CONSTIPATION [None]
  - FLATULENCE [None]
  - GASTROENTERITIS VIRAL [None]
